FAERS Safety Report 24138383 (Version 1)
Quarter: 2024Q3

REPORT INFORMATION
  Report Type: Spontaneous
  Country: US (occurrence: None)
  Receive Date: 20240725
  Receipt Date: 20240725
  Transmission Date: 20241016
  Serious: Yes (Disabling, Other)
  Sender: Public
  Company Number: None

PATIENT
  Age: 58 Year
  Sex: Female
  Weight: 58.97 kg

DRUGS (3)
  1. RISPERIDONE [Suspect]
     Active Substance: RISPERIDONE
     Indication: Psychotic disorder
     Dosage: 1 TABLET (2 MG TOTAL) BY MOUTH  2 TIMES DAILY , 2 TABLETS (4 MG) NIGHTLY ??2 MG DAILY  4MG AT NIGHT
     Route: 048
     Dates: start: 20240512, end: 20240630
  2. ABILIFY [Concomitant]
     Active Substance: ARIPIPRAZOLE
  3. WOMEN^S OVER 50 [Concomitant]

REACTIONS (5)
  - Dry mouth [None]
  - Dehydration [None]
  - Back pain [None]
  - Burning sensation [None]
  - Therapy cessation [None]

NARRATIVE: CASE EVENT DATE: 20240512
